FAERS Safety Report 8116876-0 (Version None)
Quarter: 2012Q1

REPORT INFORMATION
  Report Type: 
  Country: None (occurrence: None)
  Receive Date: 20120206
  Receipt Date: 20120201
  Transmission Date: 20120608
  Serious: Yes (Hospitalization)
  Sender: FDA-Public Use
  Company Number: PHHY2011KR105549

PATIENT
  Sex: Male

DRUGS (1)
  1. EXJADE [Suspect]
     Indication: IRON OVERLOAD
     Dosage: 625 MG, UNK
     Route: 048
     Dates: start: 20090304

REACTIONS (7)
  - THROMBOCYTOPENIA [None]
  - LUNG INFECTION [None]
  - INFLAMMATION [None]
  - PNEUMONIA [None]
  - FACE OEDEMA [None]
  - GENERALISED OEDEMA [None]
  - RENAL IMPAIRMENT [None]
